FAERS Safety Report 23826090 (Version 3)
Quarter: 2025Q3

REPORT INFORMATION
  Report Type: Report from Study
  Country: US (occurrence: US)
  Receive Date: 20240507
  Receipt Date: 20250818
  Transmission Date: 20251021
  Serious: Yes (Other)
  Sender: ABBVIE
  Company Number: US-ABBVIE-5742987

PATIENT
  Age: 49 Year
  Sex: Female

DRUGS (3)
  1. RINVOQ [Suspect]
     Active Substance: UPADACITINIB
     Indication: Colitis ulcerative
     Route: 048
     Dates: start: 20230922
  2. RINVOQ [Suspect]
     Active Substance: UPADACITINIB
     Indication: Colitis ulcerative
     Route: 048
  3. RINVOQ [Suspect]
     Active Substance: UPADACITINIB
     Indication: Colitis ulcerative
     Route: 048

REACTIONS (7)
  - Central venous catheterisation [Unknown]
  - Scratch [Unknown]
  - Anaemia [Unknown]
  - Vitamin B12 deficiency [Unknown]
  - Wound haemorrhage [Unknown]
  - Dizziness [Unknown]
  - Panic reaction [Unknown]

NARRATIVE: CASE EVENT DATE: 20250801
